FAERS Safety Report 5146495-X (Version None)
Quarter: 2006Q4

REPORT INFORMATION
  Report Type: 
  Country: None (occurrence: None)
  Receive Date: 20061102
  Receipt Date: 20061020
  Transmission Date: 20070319
  Serious: Yes (Other)
  Sender: FDA-Public Use
  Company Number: 2006129284

PATIENT
  Age: 83 Year
  Sex: Female
  Weight: 68.0396 kg

DRUGS (9)
  1. BENADRYL [Suspect]
     Indication: URTICARIA
     Dosage: 1-3 KAPSEALS AS NEEDED, ORAL
     Route: 048
     Dates: end: 20061020
  2. MEPROBAMATE [Concomitant]
  3. AZITHROMYCIN [Concomitant]
  4. FUROSEMIDE [Concomitant]
  5. ACETYLSALICYLIC ACID SRT [Concomitant]
  6. AZITHROMYCIN [Concomitant]
  7. CLONAZEPAM [Concomitant]
  8. POTASSIUM ACETATE [Concomitant]
  9. ANTIHYPERTENSIVES [Concomitant]

REACTIONS (5)
  - BLOOD PRESSURE INCREASED [None]
  - GLAUCOMA [None]
  - HEART RATE INCREASED [None]
  - INSOMNIA [None]
  - TINNITUS [None]
